FAERS Safety Report 5082403-8 (Version None)
Quarter: 2006Q3

REPORT INFORMATION
  Report Type: 
  Country: None (occurrence: None)
  Receive Date: 20060817
  Receipt Date: 20060816
  Transmission Date: 20061208
  Serious: Yes (Other)
  Sender: FDA-Public Use
  Company Number: US-GLAXOSMITHKLINE-A0616968A

PATIENT
  Sex: Female

DRUGS (4)
  1. LAMICTAL [Suspect]
     Indication: BIPOLAR DISORDER
     Dosage: 200MG PER DAY
     Route: 048
     Dates: start: 20060601
  2. WELLBUTRIN XL [Suspect]
     Indication: DEPRESSION
     Dosage: 300MG PER DAY
     Route: 048
     Dates: start: 20060701
  3. TOPAMAX [Concomitant]
  4. ATIVAN [Concomitant]

REACTIONS (12)
  - AMNESIA [None]
  - ANOREXIA [None]
  - DEPRESSION [None]
  - GINGIVAL BLEEDING [None]
  - GINGIVAL SWELLING [None]
  - INSOMNIA [None]
  - MANIA [None]
  - OBSESSIVE THOUGHTS [None]
  - PHOTOSENSITIVITY REACTION [None]
  - SKIN DISCOLOURATION [None]
  - SOMNOLENCE [None]
  - THINKING ABNORMAL [None]
